FAERS Safety Report 13422177 (Version 1)
Quarter: 2017Q2

REPORT INFORMATION
  Report Type: Spontaneous
  Country: US (occurrence: US)
  Receive Date: 20170410
  Receipt Date: 20170410
  Transmission Date: 20170830
  Serious: No
  Sender: FDA-Public Use
  Company Number: US-BIOGEN-2017BI00380159

PATIENT
  Age: 49 Year
  Sex: Female

DRUGS (2)
  1. ZINBRYTA [Suspect]
     Active Substance: DACLIZUMAB
     Indication: MULTIPLE SCLEROSIS
     Route: 065
     Dates: start: 20170322
  2. ZINBRYTA [Suspect]
     Active Substance: DACLIZUMAB
     Route: 065
     Dates: start: 20170322

REACTIONS (4)
  - Abdominal distension [Unknown]
  - Abdominal pain [Unknown]
  - Nausea [Unknown]
  - Back pain [Unknown]

NARRATIVE: CASE EVENT DATE: 20170324
